APPROVED DRUG PRODUCT: METAPROTERENOL SULFATE
Active Ingredient: METAPROTERENOL SULFATE
Strength: 10MG/5ML
Dosage Form/Route: SYRUP;ORAL
Application: A073632 | Product #001
Applicant: CHARTWELL SCHEDULED LLC
Approved: Jul 22, 1992 | RLD: No | RS: Yes | Type: RX